FAERS Safety Report 23365475 (Version 1)
Quarter: 2024Q1

REPORT INFORMATION
  Report Type: Spontaneous
  Country: US (occurrence: US)
  Receive Date: 20240104
  Receipt Date: 20240104
  Transmission Date: 20240410
  Serious: No
  Sender: FDA-Public Use
  Company Number: US-GLENMARK PHARMACEUTICALS-2023GMK082671

PATIENT

DRUGS (2)
  1. AZELAIC ACID [Suspect]
     Active Substance: AZELAIC ACID
     Indication: Rash
     Dosage: UNK
     Route: 061
  2. AZELAIC ACID [Suspect]
     Active Substance: AZELAIC ACID
     Indication: Prophylaxis

REACTIONS (6)
  - Product use issue [Unknown]
  - Product dose omission issue [Unknown]
  - Drug ineffective for unapproved indication [Unknown]
  - Application site pain [Unknown]
  - Application site paraesthesia [Unknown]
  - Product quality issue [Unknown]
